FAERS Safety Report 9852170 (Version 1)
Quarter: 2014Q1

REPORT INFORMATION
  Report Type: Spontaneous
  Country: US (occurrence: US)
  Receive Date: 20140129
  Receipt Date: 20140129
  Transmission Date: 20141002
  Serious: Yes (Hospitalization)
  Sender: FDA-Public Use
  Company Number: US-BRACCO-009201

PATIENT
  Age: 67 Year
  Sex: Female

DRUGS (3)
  1. MULTIHANCE [Suspect]
     Indication: NUCLEAR MAGNETIC RESONANCE IMAGING BRAIN
     Route: 042
     Dates: start: 20130218, end: 20130218
  2. ADVAIR [Concomitant]
     Dosage: DAILY USE
  3. CITALOPRAM [Concomitant]
     Route: 055

REACTIONS (1)
  - Hypersensitivity [Recovered/Resolved]
